FAERS Safety Report 4608535-3 (Version None)
Quarter: 2005Q1

REPORT INFORMATION
  Report Type: 
  Country: None (occurrence: None)
  Receive Date: 20050311
  Receipt Date: 20050311
  Transmission Date: 20050727
  Serious: Yes (Hospitalization)
  Sender: FDA-Public Use
  Company Number: None

PATIENT
  Age: 3 Year
  Sex: Male
  Weight: 15.8759 kg

DRUGS (2)
  1. ELIDEL [Suspect]
     Indication: ECZEMA
     Dosage: SMALL AMOUNT  BID/PRN  TOPICAL
     Route: 061
     Dates: start: 20040512, end: 20050310
  2. ELIDEL [Suspect]

REACTIONS (3)
  - ABDOMINAL PAIN [None]
  - LETHARGY [None]
  - PNEUMONIA [None]
